FAERS Safety Report 15538319 (Version 1)
Quarter: 2018Q4

REPORT INFORMATION
  Report Type: Spontaneous
  Country: US (occurrence: US)
  Receive Date: 20181022
  Receipt Date: 20181022
  Transmission Date: 20190205
  Serious: Yes (Other)
  Sender: FDA-Public Use
  Company Number: US-AMGEN-USASP2018126909

PATIENT
  Age: 43 Year
  Sex: Male
  Weight: 96.9 kg

DRUGS (8)
  1. ARANESP [Suspect]
     Active Substance: DARBEPOETIN ALFA
     Indication: NEPHROGENIC ANAEMIA
     Dosage: UNK UNK, Q2WK
     Route: 065
     Dates: start: 20180816, end: 2018
  2. ARANESP [Suspect]
     Active Substance: DARBEPOETIN ALFA
     Dosage: 400 MUG, Q2WK (DOSE ESCALATED)
     Route: 065
     Dates: start: 2018, end: 20180913
  3. LOSARTAN. [Concomitant]
     Active Substance: LOSARTAN
     Indication: HYPERTENSION
     Dosage: 25 MG, QD
     Route: 048
     Dates: start: 20160101
  4. OMEPRAZOLE. [Concomitant]
     Active Substance: OMEPRAZOLE
     Indication: GASTROOESOPHAGEAL REFLUX DISEASE
     Dosage: 20 MG, QD
     Route: 048
     Dates: start: 20160101
  5. EPOGEN [Suspect]
     Active Substance: ERYTHROPOIETIN
     Indication: NEPHROGENIC ANAEMIA
     Dosage: 20000 UNIT, Q3WK
     Route: 058
     Dates: start: 20160501, end: 20180809
  6. CHOLECALCIFEROL [Concomitant]
     Active Substance: CHOLECALCIFEROL
     Indication: VITAMIN D DEFICIENCY
     Dosage: 2000 IU, QD
     Route: 048
     Dates: start: 20160101
  7. CARVEDILOL. [Concomitant]
     Active Substance: CARVEDILOL
     Indication: CARDIAC FAILURE CONGESTIVE
     Dosage: 6.25 MG, BID
     Route: 048
     Dates: start: 20160101
  8. SEVELAMER [Concomitant]
     Active Substance: SEVELAMER
     Indication: RENAL FAILURE
     Dosage: 1600 MG, TID
     Route: 048
     Dates: start: 20160101

REACTIONS (3)
  - Anaemia [Not Recovered/Not Resolved]
  - Drug ineffective [Not Recovered/Not Resolved]
  - Reticulocyte count decreased [Unknown]

NARRATIVE: CASE EVENT DATE: 20170820
